FAERS Safety Report 15681567 (Version 1)
Quarter: 2018Q4

REPORT INFORMATION
  Report Type: Spontaneous
  Country: US (occurrence: US)
  Receive Date: 20181203
  Receipt Date: 20181203
  Transmission Date: 20190205
  Serious: Yes (Hospitalization)
  Sender: FDA-Public Use
  Company Number: US-MYLANLABS-2018M1087843

PATIENT
  Age: 42 Year
  Sex: Female
  Weight: 71 kg

DRUGS (5)
  1. METHADONE [Suspect]
     Active Substance: METHADONE HYDROCHLORIDE
     Indication: PAIN
  2. METHADONE [Suspect]
     Active Substance: METHADONE HYDROCHLORIDE
     Indication: SICKLE CELL ANAEMIA WITH CRISIS
     Dosage: EQUIVALENT TO 240 MG OF MORPHINE EQUIVALENT (MME); OPIOID USE HAD INCREASED TO 1202 MME
     Route: 065
  3. HYDROMORPHONE [Suspect]
     Active Substance: HYDROMORPHONE
     Indication: SICKLE CELL ANAEMIA WITH CRISIS
     Dosage: AS NEEDED EQUIVALENT TO UP TO 480 MG OF MORPHINE EQUIVALENTS (MME) DAILY; OPIOID USE HAD INCREASE...
     Route: 065
  4. ACETAMINOPHEN. [Concomitant]
     Active Substance: ACETAMINOPHEN
     Indication: PRODUCT USED FOR UNKNOWN INDICATION
     Dosage: 650MG EVERY 6 HOURS IF REQUIRED
     Route: 065
  5. HYDROMORPHONE [Suspect]
     Active Substance: HYDROMORPHONE
     Indication: PAIN
     Dosage: AS NEEDED EQUIVALENT TO 384 MME DAILY
     Route: 065

REACTIONS (1)
  - Hyperaesthesia [Recovered/Resolved]
